FAERS Safety Report 11119193 (Version 5)
Quarter: 2016Q1

REPORT INFORMATION
  Report Type: Spontaneous
  Country: US (occurrence: US)
  Receive Date: 20150518
  Receipt Date: 20160114
  Transmission Date: 20160525
  Serious: Yes (Other)
  Sender: FDA-Public Use
  Company Number: US-PFIZER INC-2015162326

PATIENT
  Age: 73 Year
  Sex: Female
  Weight: 65 kg

DRUGS (3)
  1. SUTENT [Suspect]
     Active Substance: SUNITINIB MALATE
     Indication: ABDOMINAL NEOPLASM
     Dosage: 37.5 MG, 1X/DAY (3-12.5MG CAPSULES)
     Route: 048
     Dates: start: 20131119
  2. SUTENT [Suspect]
     Active Substance: SUNITINIB MALATE
     Dosage: 37.5 MG, 1X/DAY (3 - 12.5MG CAPSULES)
     Route: 048
     Dates: end: 201509
  3. SUTENT [Suspect]
     Active Substance: SUNITINIB MALATE
     Dosage: 37.5 MG, 1X/DAY
     Route: 048
     Dates: start: 20131119, end: 20151223

REACTIONS (8)
  - Disease progression [Unknown]
  - Eye infection [Unknown]
  - Abdominal neoplasm [Unknown]
  - Product use issue [Unknown]
  - Abdominal pain [Unknown]
  - Sleep apnoea syndrome [Unknown]
  - Diarrhoea [Recovering/Resolving]
  - Nausea [Unknown]

NARRATIVE: CASE EVENT DATE: 20150727
